FAERS Safety Report 19722482 (Version 1)
Quarter: 2021Q3

REPORT INFORMATION
  Report Type: Spontaneous
  Country: US (occurrence: US)
  Receive Date: 20210819
  Receipt Date: 20210819
  Transmission Date: 20211014
  Serious: Yes (Other)
  Sender: FDA-Public Use
  Company Number: US-ENDO PHARMACEUTICALS INC-2021-011181

PATIENT
  Age: 85 Year
  Sex: Male
  Weight: 99.77 kg

DRUGS (4)
  1. UNSPECIFIED ANTI?CHOLESTEROL AGENT [Concomitant]
     Indication: BLOOD CHOLESTEROL ABNORMAL
     Dosage: UNK UNKNOWN, QOD
     Route: 048
  2. XIAFLEX [Suspect]
     Active Substance: COLLAGENASE CLOSTRIDIUM HISTOLYTICUM
     Indication: DUPUYTREN^S CONTRACTURE
     Dosage: UNK UNKNOWN, 1 INJECTION
     Route: 026
     Dates: start: 20210809, end: 20210809
  3. ELIQUIS [Concomitant]
     Active Substance: APIXABAN
     Indication: ANTICOAGULANT THERAPY
     Dosage: UNK UNKNOWN, BID
     Route: 048
  4. SOTALOL. [Concomitant]
     Active Substance: SOTALOL
     Indication: ARRHYTHMIA
     Dosage: 5 MG, BID
     Route: 048

REACTIONS (5)
  - Drug ineffective [Unknown]
  - Pain in extremity [Recovered/Resolved with Sequelae]
  - Hand fracture [Unknown]
  - Product communication issue [Unknown]
  - Injection site pain [Unknown]

NARRATIVE: CASE EVENT DATE: 20210809
